FAERS Safety Report 19925275 (Version 1)
Quarter: 2021Q4

REPORT INFORMATION
  Report Type: Spontaneous
  Country: US (occurrence: US)
  Receive Date: 20211006
  Receipt Date: 20211006
  Transmission Date: 20220304
  Serious: Yes (Death, Hospitalization)
  Sender: FDA-Public Use
  Company Number: US-ROCHE-2928640

PATIENT
  Sex: Female
  Weight: 104.87 kg

DRUGS (11)
  1. RITUXAN [Suspect]
     Active Substance: RITUXIMAB
     Indication: Neuromyelitis optica spectrum disorder
     Dosage: HER MOST RECENT 3 DOSES OF RITUXAN WERE 3/MAR/2021, 02/FEB/2021, AND 01/OCT/2020.
     Route: 041
     Dates: start: 201208
  2. LIPITOR [Concomitant]
     Active Substance: ATORVASTATIN CALCIUM
  3. BACLOFEN [Concomitant]
     Active Substance: BACLOFEN
  4. COREG [Concomitant]
     Active Substance: CARVEDILOL
  5. HYDROCHLOROTHIAZIDE [Concomitant]
     Active Substance: HYDROCHLOROTHIAZIDE
  6. LEVOTHYROXINE [Concomitant]
     Active Substance: LEVOTHYROXINE
  7. TIZANIDINE [Concomitant]
     Active Substance: TIZANIDINE
  8. LYRICA [Concomitant]
     Active Substance: PREGABALIN
  9. PROTONIX [Concomitant]
     Active Substance: PANTOPRAZOLE SODIUM
  10. TRILEPTAL [Concomitant]
     Active Substance: OXCARBAZEPINE
  11. PRILOSEC [Concomitant]
     Active Substance: OMEPRAZOLE MAGNESIUM

REACTIONS (2)
  - COVID-19 [Fatal]
  - Off label use [Unknown]
